FAERS Safety Report 9820176 (Version 1)
Quarter: 2013Q4

REPORT INFORMATION
  Report Type: Spontaneous
  Country: US (occurrence: None)
  Receive Date: 20131223
  Receipt Date: 20131223
  Transmission Date: 20140711
  Serious: Yes (Other)
  Sender: FDA-Public Use
  Company Number: 218440

PATIENT
  Sex: Female

DRUGS (6)
  1. PICATO [Suspect]
     Indication: ACTINIC KERATOSIS
     Route: 061
     Dates: start: 20120717
  2. LEVOTHYROXINE (LEVOTHYROXINE)(75MCG) [Concomitant]
  3. SERTRALINE (SERTRALINE) (50MCG) [Concomitant]
  4. TYLENOL (PARACETAMOL) [Concomitant]
  5. ALEVE (NAPROXEN SODIUM) [Concomitant]
  6. IMITREX (SUMATRIPTAN) [Concomitant]

REACTIONS (4)
  - Application site warmth [None]
  - Application site papules [None]
  - Application site erythema [None]
  - Application site pain [None]
